FAERS Safety Report 6742150-0 (Version None)
Quarter: 2010Q2

REPORT INFORMATION
  Report Type: 
  Country: None (occurrence: None)
  Receive Date: 20100526
  Receipt Date: 20100513
  Transmission Date: 20101027
  Serious: Yes (Other)
  Sender: FDA-Public Use
  Company Number: US-ELI_LILLY_AND_COMPANY-US201005003327

PATIENT
  Sex: Female

DRUGS (1)
  1. BYETTA [Suspect]
     Dates: end: 20090901

REACTIONS (2)
  - CARDIAC VALVE DISEASE [None]
  - VASCULAR GRAFT [None]
